FAERS Safety Report 5812422-2 (Version None)
Quarter: 2008Q3

REPORT INFORMATION
  Report Type: 
  Country: None (occurrence: None)
  Receive Date: 20080711
  Receipt Date: 20080627
  Transmission Date: 20090109
  Serious: Yes (Hospitalization)
  Sender: FDA-Public Use
  Company Number: 001866

PATIENT
  Age: 80 Year
  Sex: Male

DRUGS (9)
  1. PLETAL [Suspect]
     Indication: CEREBRAL INFARCTION
     Dosage: 100 MG, BID ORAL
     Route: 048
     Dates: start: 20050722
  2. MUCOSTA (REBAMIPIDE) TABLET [Concomitant]
  3. BLOPRESS (CANDESARTAN CILEXETIL) TABLET [Concomitant]
  4. MYONAL (EPERISONE HYDROCHLORIDE) TABLET [Concomitant]
  5. EXCELASE (SANACTASE COMBINED DRUG) CAPSULE [Concomitant]
  6. BIOFERMIN (BIFIDOBACTERIUM) TABLET [Concomitant]
  7. MAGNESIUM OXIDE (MAGNESIUM OXIDE) TABLET [Concomitant]
  8. MOHRUS TAPE (KETOPROFEN) TAPE (INCLUDING POULTICE) [Concomitant]
  9. LOXONIN (LOXOPROFEN SODIUM) TABLET [Concomitant]

REACTIONS (1)
  - COLON ADENOMA [None]
